FAERS Safety Report 10058379 (Version 1)
Quarter: 2014Q2

REPORT INFORMATION
  Report Type: Spontaneous
  Country: US (occurrence: None)
  Receive Date: 20140403
  Receipt Date: 20140403
  Transmission Date: 20141212
  Serious: Yes (Hospitalization, Other)
  Sender: FDA-Public Use
  Company Number: None

PATIENT
  Age: 68 Year
  Sex: Female
  Weight: 90.72 kg

DRUGS (14)
  1. MONTELUKAST SODIUM TABLETS DR. RADDY^S LABORATORIES LIMITED [Suspect]
     Indication: HYPERSENSITIVITY
     Route: 048
     Dates: start: 20140102, end: 20140213
  2. MONTELUKAST SODIUM TABLETS DR. RADDY^S LABORATORIES LIMITED [Suspect]
     Indication: ASTHMA
     Route: 048
     Dates: start: 20140102, end: 20140213
  3. NATURE THROID [Concomitant]
  4. OXYGEN [Concomitant]
  5. RANITDINE [Concomitant]
  6. WOMEN^S 1-ADAY [Concomitant]
  7. VIT.C. [Concomitant]
  8. B-COMPLEX [Concomitant]
  9. D [Concomitant]
  10. POTASSIUM [Concomitant]
  11. CHONDROTIN [Concomitant]
  12. MAGNESIUM [Concomitant]
  13. DIGESTIVE EMZYMES [Concomitant]
  14. ADREN-ALL [Concomitant]

REACTIONS (1)
  - Thrombosis [None]
